FAERS Safety Report 11907432 (Version 2)
Quarter: 2016Q2

REPORT INFORMATION
  Report Type: Spontaneous
  Country: FR (occurrence: FR)
  Receive Date: 20160111
  Receipt Date: 20160503
  Transmission Date: 20160815
  Serious: Yes (Hospitalization)
  Sender: FDA-Public Use
  Company Number: US-IMPAX LABORATORIES, INC-2015-IPXL-01365

PATIENT
  Age: 21 Month
  Sex: Female
  Weight: 12 kg

DRUGS (2)
  1. ALBENZA [Suspect]
     Active Substance: ALBENDAZOLE
     Dosage: 200 MG, DAILY
     Route: 042
     Dates: start: 20140825, end: 20140825
  2. ALBENZA [Suspect]
     Active Substance: ALBENDAZOLE
     Indication: ASCARIASIS
     Dosage: 0.4 G/10 ML
     Route: 048

REACTIONS (15)
  - Hepatocellular injury [Unknown]
  - Retinal disorder [Unknown]
  - Pigmentation disorder [Unknown]
  - Rhabdomyolysis [Not Recovered/Not Resolved]
  - Acute kidney injury [Not Recovered/Not Resolved]
  - Haemolytic anaemia [Not Recovered/Not Resolved]
  - Maculopathy [Unknown]
  - White matter lesion [Unknown]
  - Retinal pallor [Unknown]
  - Ischaemia [Unknown]
  - Central nervous system lesion [Unknown]
  - Chronic kidney disease [Not Recovered/Not Resolved]
  - Renal necrosis [Unknown]
  - Medication error [Unknown]
  - Blood albumin decreased [Unknown]

NARRATIVE: CASE EVENT DATE: 2014
